FAERS Safety Report 8841867 (Version 1)
Quarter: 2012Q4

REPORT INFORMATION
  Report Type: Spontaneous
  Country: US (occurrence: None)
  Receive Date: 20121015
  Receipt Date: 20121015
  Transmission Date: 20130627
  Serious: Yes (Other)
  Sender: FDA-Public Use
  Company Number: None

PATIENT
  Age: 88 Year
  Sex: Male
  Weight: 83.92 kg

DRUGS (1)
  1. PLAVIX [Suspect]
     Indication: STROKE
     Dosage: round white tab marked M + C27
     Dates: start: 20120905, end: 20120926

REACTIONS (2)
  - Tendon rupture [None]
  - Haemorrhage subcutaneous [None]
